FAERS Safety Report 5637608-1 (Version None)
Quarter: 2008Q1

REPORT INFORMATION
  Report Type: 
  Country: None (occurrence: None)
  Receive Date: 20080225
  Receipt Date: 20080219
  Transmission Date: 20080703
  Serious: Yes (Other)
  Sender: FDA-Public Use
  Company Number: BE-SANOFI-SYNTHELABO-A01200801640

PATIENT
  Age: 68 Year
  Sex: Male

DRUGS (5)
  1. COZAAR [Interacting]
     Indication: MYOCARDIAL INFARCTION
     Dosage: UNK
     Route: 048
  2. XATRAL UNO [Suspect]
     Indication: BENIGN PROSTATIC HYPERPLASIA
     Route: 048
  3. XATRAL UNO [Interacting]
     Indication: POLLAKIURIA
     Route: 048
  4. XATRAL UNO [Interacting]
     Route: 048
  5. XATRAL UNO [Interacting]
     Route: 048

REACTIONS (4)
  - ATRIAL FIBRILLATION [None]
  - DIZZINESS [None]
  - DRUG INTERACTION [None]
  - VERTIGO [None]
